FAERS Safety Report 15712959 (Version 1)
Quarter: 2018Q4

REPORT INFORMATION
  Report Type: Spontaneous
  Country: US (occurrence: US)
  Receive Date: 20181211
  Receipt Date: 20181211
  Transmission Date: 20190205
  Serious: Yes (Other)
  Sender: FDA-Public Use
  Company Number: None

PATIENT
  Age: 62 Year
  Sex: Female
  Weight: 83.1 kg

DRUGS (17)
  1. VITAMIN B [Concomitant]
     Active Substance: VITAMIN B
  2. VITAMIN C [Concomitant]
     Active Substance: ASCORBIC ACID
  3. ATENOLOL. [Concomitant]
     Active Substance: ATENOLOL
  4. METFORMIN [Concomitant]
     Active Substance: METFORMIN HYDROCHLORIDE
  5. BENADRYL [Concomitant]
     Active Substance: DIPHENHYDRAMINE HYDROCHLORIDE
  6. NEURONTIN [Concomitant]
     Active Substance: GABAPENTIN
  7. XANAX [Concomitant]
     Active Substance: ALPRAZOLAM
  8. NORVASC [Concomitant]
     Active Substance: AMLODIPINE BESYLATE
  9. LOSARTAN. [Concomitant]
     Active Substance: LOSARTAN
  10. JANUVIA [Concomitant]
     Active Substance: SITAGLIPTIN PHOSPHATE
  11. PROAIR HFA [Concomitant]
     Active Substance: ALBUTEROL SULFATE
  12. VITAMIN A [Concomitant]
     Active Substance: VITAMIN A
  13. NEXIUM [Concomitant]
     Active Substance: ESOMEPRAZOLE MAGNESIUM
  14. HYDROCHLOROTHIAZIDE. [Concomitant]
     Active Substance: HYDROCHLOROTHIAZIDE
  15. CAPECITABINE. [Suspect]
     Active Substance: CAPECITABINE
     Indication: OVARIAN CANCER
     Route: 048
     Dates: start: 20180817
  16. CAPECITABINE. [Suspect]
     Active Substance: CAPECITABINE
     Indication: OVARIAN CANCER
     Route: 048
     Dates: start: 20180817
  17. LIPITOR [Concomitant]
     Active Substance: ATORVASTATIN CALCIUM

REACTIONS (1)
  - Cardiac valve disease [None]

NARRATIVE: CASE EVENT DATE: 20181024
